FAERS Safety Report 8586640-7 (Version None)
Quarter: 2012Q3

REPORT INFORMATION
  Report Type: 
  Country: None (occurrence: None)
  Receive Date: 20120810
  Receipt Date: 20120803
  Transmission Date: 20120928
  Serious: No
  Sender: FDA-Public Use
  Company Number: GB-ABBOTT-12P-167-0901281-00

PATIENT
  Sex: Female

DRUGS (1)
  1. HUMIRA [Suspect]
     Indication: PRODUCT USED FOR UNKNOWN INDICATION
     Dates: start: 20110202

REACTIONS (3)
  - JOINT SWELLING [None]
  - ARTHRALGIA [None]
  - ARTHRITIS ENTEROPATHIC [None]
